FAERS Safety Report 8760803 (Version 1)
Quarter: 2012Q4

REPORT INFORMATION
  Report Type: 
  Country: US (occurrence: US)
  Receive Date: 20120830
  Receipt Date: 20120830
  Transmission Date: 20130627
  Serious: No
  Sender: FDA-Public Use
  Company Number: US-JNJFOC-20120807409

PATIENT

DRUGS (1)
  1. INVEGA SUSTENNA [Suspect]
     Indication: ACCIDENTAL EXPOSURE TO PRODUCT
     Route: 030
     Dates: start: 20120809

REACTIONS (2)
  - Accidental exposure to product [Recovered/Resolved]
  - Device leakage [Unknown]
